FAERS Safety Report 11541254 (Version 1)
Quarter: 2015Q3

REPORT INFORMATION
  Report Type: Spontaneous
  Country: FR (occurrence: FR)
  Receive Date: 20150923
  Receipt Date: 20150923
  Transmission Date: 20151125
  Serious: Yes (Hospitalization)
  Sender: FDA-Public Use
  Company Number: FR-BAUSCH-BL-2015-022034

PATIENT
  Sex: Female

DRUGS (14)
  1. TRUVADA [Concomitant]
     Active Substance: EMTRICITABINE\TENOFOVIR DISOPROXIL FUMARATE
     Dosage: 200 MG / 245 MG: 1 TABLET PER DAY
     Dates: start: 20150428, end: 20150527
  2. XENAZINE [Suspect]
     Active Substance: TETRABENAZINE
     Route: 048
     Dates: start: 201403, end: 20150601
  3. SERESTA [Concomitant]
     Active Substance: OXAZEPAM
     Dosage: 5 MG EVERY MORNING, 10 MG AT MIDDAY AND 25 MG EVERY EVENING
     Dates: start: 201411
  4. MIRTAZAPINE BLUEFISH [Concomitant]
     Dates: start: 20150429
  5. DIFFU K [Concomitant]
     Active Substance: POTASSIUM CHLORIDE
  6. LEVETIRACTAM [Concomitant]
     Active Substance: LEVETIRACETAM
     Dosage: 2 TABLETS MORNING AND EVENING
  7. NORVIR [Concomitant]
     Active Substance: RITONAVIR
     Dates: start: 20150428, end: 20150527
  8. IMOVANE [Concomitant]
     Active Substance: ZOPICLONE
  9. XENAZINE [Suspect]
     Active Substance: TETRABENAZINE
     Indication: HUNTINGTON^S DISEASE
     Route: 048
     Dates: start: 201411, end: 2014
  10. MYLAN LANSOPRAZOLE [Concomitant]
     Active Substance: LANSOPRAZOLE
     Dates: end: 20150427
  11. PREZISTA [Concomitant]
     Active Substance: DARUNAVIR ETHANOLATE
     Dates: start: 20150428, end: 201505
  12. FUROSEMIDE. [Concomitant]
     Active Substance: FUROSEMIDE
  13. GABAPENTINE ARROW [Concomitant]
     Active Substance: GABAPENTIN
     Dates: start: 20150414
  14. FLUTICASONE W/SALMETEROL [Concomitant]
     Active Substance: FLUTICASONE PROPIONATE\SALMETEROL XINAFOATE
     Dosage: 500/50 MICROGRAM 1 DOSE EVERY MORNING AND EVENING

REACTIONS (2)
  - Dysphagia [Recovered/Resolved]
  - Mental impairment [Recovered/Resolved]
